FAERS Safety Report 23242534 (Version 1)
Quarter: 2023Q4

REPORT INFORMATION
  Report Type: Report from Study
  Country: FR (occurrence: None)
  Receive Date: 20231129
  Receipt Date: 20231129
  Transmission Date: 20240110
  Serious: Yes (Hospitalization, Other)
  Sender: FDA-Public Use
  Company Number: 2021A904841

PATIENT
  Age: 83 Year
  Sex: Male

DRUGS (14)
  1. ANDEXXA [Suspect]
     Active Substance: ANDEXANET ALFA
     Indication: Procoagulant therapy
     Dosage: 400 MG, SINGLE
     Route: 040
     Dates: start: 20210218, end: 20210218
  2. ELIQUIS [Concomitant]
     Active Substance: APIXABAN
     Indication: Anticoagulant therapy
     Dosage: 5 MG, BID
     Route: 048
     Dates: end: 20210218
  3. LOXEN                              /00639802/ [Concomitant]
     Indication: Product used for unknown indication
     Dosage: 1 MG, Q1H
     Route: 042
     Dates: start: 20210218, end: 20210222
  4. ACETAMINOPHEN [Concomitant]
     Active Substance: ACETAMINOPHEN
     Indication: Product used for unknown indication
     Dosage: 1G
     Route: 042
     Dates: start: 20210218, end: 20210224
  5. PANTOPRAZOLE [Concomitant]
     Active Substance: PANTOPRAZOLE
     Indication: Product used for unknown indication
     Dosage: 50ML
     Route: 042
     Dates: start: 20210219, end: 20210222
  6. GLUCOSE W/SODIUM CHLORIDE [Concomitant]
     Indication: Product used for unknown indication
     Dosage: 500 ML
     Route: 042
     Dates: start: 20210218, end: 20210224
  7. AUGMENTIN                          /00756801/ [Concomitant]
     Indication: Product used for unknown indication
     Dosage: 1 G, TID
     Route: 042
     Dates: start: 20210218, end: 20210226
  8. NOVORAPID [Concomitant]
     Active Substance: INSULIN ASPART
     Indication: Product used for unknown indication
     Dosage: UNK
     Route: 058
     Dates: start: 20210219, end: 20210305
  9. MICROLAX                           /00285401/ [Concomitant]
     Indication: Product used for unknown indication
     Dosage: 1 DOSE, QD
     Route: 054
     Dates: start: 20210219, end: 20210312
  10. ACUPAN [Concomitant]
     Active Substance: NEFOPAM HYDROCHLORIDE
     Indication: Product used for unknown indication
     Dosage: 100 ML, QID
     Route: 042
     Dates: start: 20210220, end: 20210222
  11. PRIMPERAN [Concomitant]
     Active Substance: METOCLOPRAMIDE HYDROCHLORIDE
     Indication: Product used for unknown indication
     Dosage: 1 AMPOULE, PRN
     Route: 042
     Dates: start: 20210219, end: 20210224
  12. FUROSEMIDE [Concomitant]
     Active Substance: FUROSEMIDE
     Indication: Product used for unknown indication
     Dosage: 100 ML, SINGLE
     Route: 042
     Dates: start: 20210221, end: 20210221
  13. DETENSIEL                          /00802601/ [Concomitant]
     Indication: Product used for unknown indication
     Dosage: 1.25 MG
     Route: 048
     Dates: start: 20210220, end: 20210302
  14. CANDESARTAN CILEXETIL\HYDROCHLOROTHIAZIDE [Concomitant]
     Active Substance: CANDESARTAN CILEXETIL\HYDROCHLOROTHIAZIDE
     Indication: Product used for unknown indication
     Dosage: 0.5 TABLET, QD
     Route: 048
     Dates: start: 20210220, end: 20210220

REACTIONS (2)
  - Myocardial infarction [Recovered/Resolved]
  - Hydrocephalus [Recovered/Resolved]

NARRATIVE: CASE EVENT DATE: 20210220
